FAERS Safety Report 7057935-3 (Version None)
Quarter: 2010Q4

REPORT INFORMATION
  Report Type: 
  Country: None (occurrence: None)
  Receive Date: 20101022
  Receipt Date: 20101015
  Transmission Date: 20110411
  Serious: Yes (Other)
  Sender: FDA-Public Use
  Company Number: US-PFIZER INC-2004058174

PATIENT
  Sex: Male
  Weight: 61 kg

DRUGS (25)
  1. LIPITOR [Suspect]
     Indication: DIABETES MELLITUS
     Dosage: 10 MG, 1X/DAY
     Route: 048
     Dates: start: 19980101
  2. LIPITOR [Suspect]
     Indication: BLOOD CHOLESTEROL INCREASED
  3. SORTIS [Suspect]
     Dosage: UNK
  4. LESCOL [Suspect]
     Indication: ILL-DEFINED DISORDER
     Route: 048
     Dates: start: 19980101
  5. ALTACE [Concomitant]
     Route: 065
  6. VITAMIN A [Concomitant]
     Route: 065
  7. SELENIUM [Concomitant]
     Route: 065
  8. ZINC [Concomitant]
     Route: 065
  9. CALCIUM [Concomitant]
     Route: 065
  10. BRAN [Concomitant]
     Route: 065
  11. KELP [Concomitant]
     Route: 065
  12. VITAMIN B6 [Concomitant]
     Route: 065
  13. LECITHIN [Concomitant]
     Route: 065
  14. APPLE CIDER VINEGAR [Concomitant]
     Route: 065
  15. COENZYME Q10 [Concomitant]
     Route: 065
  16. LYCOPENE [Concomitant]
     Route: 065
  17. ALL OTHER THERAPEUTIC PRODUCTS [Concomitant]
     Route: 065
  18. CRANBERRY [Concomitant]
     Route: 065
  19. ALL OTHER THERAPEUTIC PRODUCTS [Concomitant]
     Route: 065
  20. VITAMIN B [Concomitant]
     Route: 065
  21. ASCORBIC ACID [Concomitant]
     Route: 065
  22. VITAMIN D [Concomitant]
     Route: 065
  23. VITAMIN E [Concomitant]
     Route: 065
  24. VITAMINS [Concomitant]
     Dosage: UNK
  25. MINERAL TAB [Concomitant]
     Dosage: UNK

REACTIONS (13)
  - ABDOMINAL DISCOMFORT [None]
  - ABDOMINAL PAIN UPPER [None]
  - ARTHRALGIA [None]
  - ASPARTATE AMINOTRANSFERASE INCREASED [None]
  - BACK PAIN [None]
  - CATARACT [None]
  - DRUG INEFFECTIVE [None]
  - FEELING ABNORMAL [None]
  - FLATULENCE [None]
  - HEPATIC ENZYME INCREASED [None]
  - HIGH DENSITY LIPOPROTEIN DECREASED [None]
  - TENDONITIS [None]
  - WRONG TECHNIQUE IN DRUG USAGE PROCESS [None]
